FAERS Safety Report 9218440 (Version 3)
Quarter: 2013Q4

REPORT INFORMATION
  Report Type: Spontaneous
  Country: US (occurrence: US)
  Receive Date: 20130409
  Receipt Date: 20131125
  Transmission Date: 20140711
  Serious: No
  Sender: FDA-Public Use
  Company Number: US-BIOGENIDEC-2013BI030461

PATIENT
  Sex: Female

DRUGS (1)
  1. TYSABRI [Suspect]
     Indication: MULTIPLE SCLEROSIS
     Route: 042
     Dates: start: 20120106

REACTIONS (14)
  - Emotional distress [Unknown]
  - Cognitive disorder [Unknown]
  - Stress [Unknown]
  - Musculoskeletal disorder [Unknown]
  - Coordination abnormal [Unknown]
  - Underweight [Not Recovered/Not Resolved]
  - Nervousness [Unknown]
  - Ear infection [Unknown]
  - Tooth extraction [Unknown]
  - Anxiety [Unknown]
  - Off label use [Unknown]
  - Fatigue [Unknown]
  - Multiple sclerosis [Unknown]
  - Drug ineffective [Not Recovered/Not Resolved]
